FAERS Safety Report 13054158 (Version 1)
Quarter: 2016Q4

REPORT INFORMATION
  Report Type: Spontaneous
  Country: US (occurrence: US)
  Receive Date: 20161222
  Receipt Date: 20161222
  Transmission Date: 20170207
  Serious: Yes (Hospitalization)
  Sender: FDA-Public Use
  Company Number: None

PATIENT

DRUGS (1)
  1. NPH INSULIN [Suspect]
     Active Substance: INSULIN BEEF
     Indication: DIABETES MELLITUS
     Route: 058

REACTIONS (3)
  - Incorrect dose administered [None]
  - Drug prescribing error [None]
  - Hyperinsulinaemic hypoglycaemia [None]

NARRATIVE: CASE EVENT DATE: 20160701
